FAERS Safety Report 7822163-8 (Version None)
Quarter: 2011Q4

REPORT INFORMATION
  Report Type: 
  Country: None (occurrence: None)
  Receive Date: 20111018
  Receipt Date: 20110208
  Transmission Date: 20120403
  Serious: No
  Sender: FDA-Public Use
  Company Number: US-ASTRAZENECA-2011SE07478

PATIENT
  Age: 86 Year
  Sex: Female

DRUGS (2)
  1. SYMBICORT [Suspect]
     Indication: PULMONARY FIBROSIS
     Dosage: 160/4.5 MCG BID
     Route: 055
     Dates: start: 20100501
  2. CELEBREX [Concomitant]

REACTIONS (3)
  - DYSPNOEA [None]
  - DYSPHONIA [None]
  - HEADACHE [None]
